FAERS Safety Report 4448396-9 (Version None)
Quarter: 2004Q3

REPORT INFORMATION
  Report Type: 
  Country: None (occurrence: None)
  Receive Date: 20040730
  Receipt Date: 20040518
  Transmission Date: 20050211
  Serious: Yes (Hospitalization, Other)
  Sender: FDA-Public Use
  Company Number: 2004-05-1673

PATIENT
  Age: 56 Year
  Sex: Female

DRUGS (7)
  1. INTRON A [Suspect]
     Indication: MALIGNANT MELANOMA
     Dosage: 20-5 MIU/M^2 INTRAVENOUS
     Route: 042
     Dates: start: 20040322, end: 20040405
  2. INTRON A [Suspect]
     Indication: MALIGNANT MELANOMA
     Dosage: 20-5 MIU/M^2 INTRAVENOUS
     Route: 042
     Dates: start: 20040423, end: 20040423
  3. INTRON A [Suspect]
     Indication: MALIGNANT MELANOMA
     Dosage: 20-5 MIU/M^2 INTRAVENOUS
     Route: 042
     Dates: start: 20040413
  4. TYLENOL [Concomitant]
  5. ELAVIL [Concomitant]
  6. XANAX [Concomitant]
  7. DILAUDID [Concomitant]

REACTIONS (7)
  - ALANINE AMINOTRANSFERASE INCREASED [None]
  - ASPARTATE AMINOTRANSFERASE INCREASED [None]
  - ASTHENIA [None]
  - BLOOD ALKALINE PHOSPHATASE INCREASED [None]
  - CATHETER RELATED INFECTION [None]
  - CONFUSIONAL STATE [None]
  - STAPHYLOCOCCAL INFECTION [None]
